FAERS Safety Report 10723407 (Version 2)
Quarter: 2015Q2

REPORT INFORMATION
  Report Type: Spontaneous
  Country: JP (occurrence: JP)
  Receive Date: 20150120
  Receipt Date: 20150402
  Transmission Date: 20150821
  Serious: Yes (Hospitalization)
  Sender: FDA-Public Use
  Company Number: JP-TEVA-521696ISR

PATIENT
  Age: 77 Year
  Sex: Female
  Weight: 50 kg

DRUGS (9)
  1. MICARDIS TABLETS 20MG [Concomitant]
     Indication: HYPERTENSION
     Dosage: 20 MILLIGRAM DAILY;
     Route: 048
  2. FEXOFENADINE HYDROCHLORIDE TAB. ^TEVA^ [Suspect]
     Active Substance: FEXOFENADINE HYDROCHLORIDE
     Indication: SEASONAL ALLERGY
     Dosage: 120 MILLIGRAM DAILY;
     Route: 048
     Dates: start: 201408, end: 20141106
  3. CRAVIT TABLETS 500MG [Concomitant]
     Indication: PULMONARY TUBERCULOSIS
     Dosage: 500 MILLIGRAM DAILY;
     Route: 048
     Dates: start: 20141105, end: 20141106
  4. CARBOCISTEINE TAB. [SAWAI] [Concomitant]
     Indication: PULMONARY TUBERCULOSIS
     Dosage: 1500 MILLIGRAM DAILY;
     Route: 048
     Dates: start: 20141105, end: 20141106
  5. PRANLUKAST TAB. 225 #EK# [Suspect]
     Active Substance: PRANLUKAST
     Indication: SEASONAL ALLERGY
     Dosage: 450 MILLIGRAM DAILY;
     Route: 048
     Dates: end: 20141106
  6. AMBROXOL HYDROCHLORIDE TAB. [NICHIIKO] [Suspect]
     Active Substance: AMBROXOL HYDROCHLORIDE
     Indication: SEASONAL ALLERGY
     Dosage: 45 MILLIGRAM DAILY;
     Route: 048
     Dates: end: 20141106
  7. HOKUNALIN TAPE 2MG [Concomitant]
     Indication: PULMONARY TUBERCULOSIS
     Dosage: 2 MILLIGRAM DAILY; RESTARTED ON UNKNOWN DATE
     Route: 062
     Dates: start: 20141105, end: 20141106
  8. AMLODIPINE OD TAB. 2.5MG#EMEC# [Concomitant]
     Indication: HYPERTENSION
     Dosage: 2.5 MILLIGRAM DAILY;
     Route: 048
  9. ARTIST TABLETS 10MG [Concomitant]
     Indication: HYPERTENSION
     Dosage: 10 MILLIGRAM DAILY;
     Route: 048

REACTIONS (1)
  - Liver disorder [Recovering/Resolving]

NARRATIVE: CASE EVENT DATE: 20141105
